FAERS Safety Report 15265154 (Version 1)
Quarter: 2018Q3

REPORT INFORMATION
  Report Type: Other
  Country: US (occurrence: US)
  Receive Date: 20180810
  Receipt Date: 20180810
  Transmission Date: 20181010
  Serious: Yes (Death)
  Sender: FDA-Public Use
  Company Number: US-ACTELION-A-CH2018-176902

PATIENT
  Age: 45 Year
  Sex: Female

DRUGS (4)
  1. EPOPROSTENOL SODIUM. [Suspect]
     Active Substance: EPOPROSTENOL SODIUM
     Indication: PULMONARY HYPERTENSION
     Route: 042
  2. DURVALUMAB. [Concomitant]
     Active Substance: DURVALUMAB
  3. RIOCIGUAT. [Concomitant]
     Active Substance: RIOCIGUAT
  4. CEDIRANIB. [Concomitant]
     Active Substance: CEDIRANIB

REACTIONS (3)
  - Hypoxia [Unknown]
  - Pulmonary veno-occlusive disease [Fatal]
  - Pulmonary tumour thrombotic microangiopathy [Fatal]
